FAERS Safety Report 5646661-0 (Version None)
Quarter: 2008Q1

REPORT INFORMATION
  Report Type: 
  Country: None (occurrence: None)
  Receive Date: 20080303
  Receipt Date: 20080221
  Transmission Date: 20080703
  Serious: Yes (Death, Other)
  Sender: FDA-Public Use
  Company Number: PHHO2007BE15965

PATIENT
  Age: 46 Year
  Sex: Female

DRUGS (1)
  1. ZOMETA [Suspect]
     Indication: BREAST CANCER
     Dosage: 4 MG, EVERY 3-4 WKS
     Route: 042
     Dates: start: 20030731, end: 20070326

REACTIONS (7)
  - BONE DISORDER [None]
  - DENTAL TREATMENT [None]
  - IMPAIRED HEALING [None]
  - MALIGNANT NEOPLASM PROGRESSION [None]
  - OSTEONECROSIS [None]
  - PAIN IN JAW [None]
  - SECRETION DISCHARGE [None]
